FAERS Safety Report 6516021-9 (Version None)
Quarter: 2009Q4

REPORT INFORMATION
  Report Type: 
  Country: None (occurrence: None)
  Receive Date: 20091223
  Receipt Date: 20090618
  Transmission Date: 20100525
  Serious: No
  Sender: FDA-Public Use
  Company Number: US-ABBOTT-09P-163-0569807-00

PATIENT
  Sex: Male
  Weight: 73.548 kg

DRUGS (5)
  1. LUPRON DEPOT [Suspect]
     Indication: PROSTATE CANCER
     Route: 050
     Dates: start: 20070611
  2. COUMADIN [Concomitant]
     Indication: CARDIAC DISORDER
     Route: 048
  3. COUMADIN [Concomitant]
     Route: 048
  4. DIGOXIN [Concomitant]
     Indication: CARDIAC DISORDER
  5. METOPROLOL TARTRATE [Concomitant]
     Indication: HYPERTENSION
     Route: 048

REACTIONS (10)
  - BONE DISORDER [None]
  - BONE PAIN [None]
  - CELLULITIS [None]
  - DYSPNOEA [None]
  - GAIT DISTURBANCE [None]
  - HOT FLUSH [None]
  - MUSCLE SPASMS [None]
  - MYALGIA [None]
  - NOCTURIA [None]
  - PROSTATIC SPECIFIC ANTIGEN INCREASED [None]
